FAERS Safety Report 14619899 (Version 1)
Quarter: 2018Q1

REPORT INFORMATION
  Report Type: Spontaneous
  Country: GB (occurrence: DK)
  Receive Date: 20180309
  Receipt Date: 20180309
  Transmission Date: 20180509
  Serious: Yes (Other)
  Sender: FDA-Public Use
  Company Number: DK-FRESENIUS KABI-FK201802847

PATIENT
  Age: 3 Year
  Sex: Female

DRUGS (10)
  1. CISPLATIN. [Suspect]
     Active Substance: CISPLATIN
     Route: 065
     Dates: end: 201710
  2. AVASTIN [Suspect]
     Active Substance: BEVACIZUMAB
     Route: 065
     Dates: end: 201606
  3. VINCRISTINE [Suspect]
     Active Substance: VINCRISTINE
     Route: 065
     Dates: end: 201710
  4. CISPLATIN. [Suspect]
     Active Substance: CISPLATIN
     Indication: ASTROCYTOMA, LOW GRADE
     Route: 065
     Dates: end: 201606
  5. CYCLOPHOSPHAMIDE. [Suspect]
     Active Substance: CYCLOPHOSPHAMIDE
     Indication: ASTROCYTOMA, LOW GRADE
     Route: 065
     Dates: end: 201710
  6. VINCRISTINE [Suspect]
     Active Substance: VINCRISTINE
     Indication: ASTROCYTOMA, LOW GRADE
     Route: 065
     Dates: start: 201506, end: 201606
  7. AVASTIN [Suspect]
     Active Substance: BEVACIZUMAB
     Indication: ASTROCYTOMA, LOW GRADE
     Route: 065
     Dates: end: 201710
  8. CARBOPLATIN (MANUFACTURER UNKNOWN) [Suspect]
     Active Substance: CARBOPLATIN
     Indication: ASTROCYTOMA, LOW GRADE
     Route: 065
     Dates: start: 201506, end: 201606
  9. CARBOPLATIN (MANUFACTURER UNKNOWN) [Suspect]
     Active Substance: CARBOPLATIN
     Route: 065
     Dates: end: 201710
  10. CYCLOPHOSPHAMIDE. [Suspect]
     Active Substance: CYCLOPHOSPHAMIDE
     Route: 065
     Dates: end: 201606

REACTIONS (3)
  - Visual impairment [Unknown]
  - Cerebral ventricle dilatation [Unknown]
  - Neoplasm progression [Unknown]
